FAERS Safety Report 25607130 (Version 1)
Quarter: 2025Q3

REPORT INFORMATION
  Report Type: Spontaneous
  Country: EU (occurrence: EU)
  Receive Date: 20250725
  Receipt Date: 20250725
  Transmission Date: 20251021
  Serious: Yes (Other)
  Sender: MYLAN
  Company Number: None

PATIENT
  Age: 51 Year
  Sex: Male

DRUGS (20)
  1. PAROXETINE [Suspect]
     Active Substance: PAROXETINE
     Indication: Depression
     Dosage: 1 DOSAGE FORM, QD
  2. PAROXETINE [Suspect]
     Active Substance: PAROXETINE
     Dosage: 1 DOSAGE FORM, QD
     Route: 048
  3. PAROXETINE [Suspect]
     Active Substance: PAROXETINE
     Dosage: 1 DOSAGE FORM, QD
     Route: 048
  4. PAROXETINE [Suspect]
     Active Substance: PAROXETINE
     Dosage: 1 DOSAGE FORM, QD
  5. SEROQUEL [Suspect]
     Active Substance: QUETIAPINE FUMARATE
     Indication: Depression
     Dosage: 1 DOSAGE FORM, QD
  6. SEROQUEL [Suspect]
     Active Substance: QUETIAPINE FUMARATE
     Dosage: 1 DOSAGE FORM, QD
     Route: 048
  7. SEROQUEL [Suspect]
     Active Substance: QUETIAPINE FUMARATE
     Dosage: 1 DOSAGE FORM, QD
     Route: 048
  8. SEROQUEL [Suspect]
     Active Substance: QUETIAPINE FUMARATE
     Dosage: 1 DOSAGE FORM, QD
  9. CYAMEMAZINE [Suspect]
     Active Substance: CYAMEMAZINE
     Indication: Depression
     Dosage: 1 DOSAGE FORM, QD
  10. CYAMEMAZINE [Suspect]
     Active Substance: CYAMEMAZINE
     Dosage: 1 DOSAGE FORM, QD
     Route: 048
  11. CYAMEMAZINE [Suspect]
     Active Substance: CYAMEMAZINE
     Dosage: 1 DOSAGE FORM, QD
     Route: 048
  12. CYAMEMAZINE [Suspect]
     Active Substance: CYAMEMAZINE
     Dosage: 1 DOSAGE FORM, QD
  13. LORMETAZEPAM [Suspect]
     Active Substance: LORMETAZEPAM
     Indication: Depression
     Dosage: 1 DOSAGE FORM, QD
  14. LORMETAZEPAM [Suspect]
     Active Substance: LORMETAZEPAM
     Dosage: 1 DOSAGE FORM, QD
     Route: 048
  15. LORMETAZEPAM [Suspect]
     Active Substance: LORMETAZEPAM
     Dosage: 1 DOSAGE FORM, QD
     Route: 048
  16. LORMETAZEPAM [Suspect]
     Active Substance: LORMETAZEPAM
     Dosage: 1 DOSAGE FORM, QD
  17. ASPIRIN [Suspect]
     Active Substance: ASPIRIN
     Indication: Cardiovascular event prophylaxis
     Dosage: 75 MILLIGRAM, QD
  18. ASPIRIN [Suspect]
     Active Substance: ASPIRIN
     Dosage: 75 MILLIGRAM, QD
     Route: 048
  19. ASPIRIN [Suspect]
     Active Substance: ASPIRIN
     Dosage: 75 MILLIGRAM, QD
     Route: 048
  20. ASPIRIN [Suspect]
     Active Substance: ASPIRIN
     Dosage: 75 MILLIGRAM, QD

REACTIONS (1)
  - Ventricular dysfunction [Not Recovered/Not Resolved]

NARRATIVE: CASE EVENT DATE: 20250220
